FAERS Safety Report 12687724 (Version 2)
Quarter: 2016Q3

REPORT INFORMATION
  Report Type: Spontaneous
  Country: FR (occurrence: FR)
  Receive Date: 20160825
  Receipt Date: 20160913
  Transmission Date: 20161109
  Serious: Yes (Hospitalization)
  Sender: FDA-Public Use
  Company Number: FR-PFIZER INC-2016389810

PATIENT
  Age: 45 Year
  Sex: Female

DRUGS (14)
  1. IBUPROFEN. [Suspect]
     Active Substance: IBUPROFEN
     Dosage: 2 G, SINGLE
     Route: 048
     Dates: start: 20160718, end: 20160718
  2. CLORAZEPATE DIPOTASSIUM. [Suspect]
     Active Substance: CLORAZEPATE DIPOTASSIUM
     Dosage: 40 MG, SINGLE
     Route: 048
     Dates: start: 20160718, end: 20160718
  3. TERCIAN /00759301/ [Concomitant]
     Active Substance: CYAMEMAZINE
     Dosage: 25 MG, 1X/DAY (AT BEDTIME)
  4. XANAX [Suspect]
     Active Substance: ALPRAZOLAM
     Dosage: 0.5 MG, 1 TO 3 TABLETS DAILY, AS NEEDED
     Route: 048
  5. SOLIAN [Suspect]
     Active Substance: AMISULPRIDE
     Dosage: 1800 MG, SINGLE
     Route: 048
     Dates: start: 20160718, end: 20160718
  6. XANAX [Suspect]
     Active Substance: ALPRAZOLAM
     Dosage: 9 MG, SINGLE
     Route: 048
     Dates: start: 20160718, end: 20160718
  7. ZYPREXA [Suspect]
     Active Substance: OLANZAPINE
     Dosage: 210 MG, SINGLE
     Route: 048
     Dates: start: 20160718, end: 20160718
  8. DIAZEPAM. [Suspect]
     Active Substance: DIAZEPAM
     Dosage: 50 MG, SINGLE
     Route: 048
     Dates: start: 20160718, end: 20160718
  9. OMEPRAZOLE. [Suspect]
     Active Substance: OMEPRAZOLE
     Dosage: 100 MG, SINGLE
     Route: 048
     Dates: start: 20160718, end: 20160718
  10. ZYPREXA [Suspect]
     Active Substance: OLANZAPINE
     Dosage: 10 MG, DAILY
     Route: 048
  11. SOLIAN [Suspect]
     Active Substance: AMISULPRIDE
     Dosage: 600 MG, DAILY
     Route: 048
  12. METEOSPASMYL [Suspect]
     Active Substance: ALVERINE CITRATE\DIMETHICONE
     Dosage: 3 DF, SINGLE
     Route: 048
     Dates: start: 20160718, end: 20160718
  13. ZOLPIDEM [Suspect]
     Active Substance: ZOLPIDEM\ZOLPIDEM TARTRATE
     Dosage: 210 MG, SINGLE
     Route: 048
     Dates: start: 20160718, end: 20160718
  14. SERTRALINE [Concomitant]
     Active Substance: SERTRALINE HYDROCHLORIDE
     Dosage: 100 MG, DAILY
     Route: 048

REACTIONS (9)
  - Coma [Recovered/Resolved]
  - Disturbance in attention [Recovered/Resolved]
  - Intentional overdose [Unknown]
  - Suicidal ideation [Unknown]
  - Miosis [Recovered/Resolved]
  - Sinus tachycardia [Unknown]
  - Extensor plantar response [Recovered/Resolved]
  - Blood pressure systolic increased [Unknown]
  - Electrocardiogram QT prolonged [Unknown]

NARRATIVE: CASE EVENT DATE: 20160718
